FAERS Safety Report 9227251 (Version 1)
Quarter: 2013Q1

REPORT INFORMATION
  Report Type: Spontaneous
  Country: US (occurrence: None)
  Receive Date: 20120914
  Receipt Date: 20120914
  Transmission Date: 20140127
  Serious: Yes (Other)
  Sender: FDA-Public Use
  Company Number: JPI-P-019310

PATIENT
  Age: 62 Year
  Sex: Male

DRUGS (2)
  1. XYREM [Suspect]
     Indication: SLEEP APNOEA SYNDROME
     Route: 048
     Dates: start: 20120109
  2. MULTIPLE UNSPECIFIED MEDICATION [Concomitant]

REACTIONS (4)
  - Hypertension [None]
  - Pollakiuria [None]
  - Feeling abnormal [None]
  - Middle insomnia [None]
